FAERS Safety Report 5240152-7 (Version None)
Quarter: 2007Q1

REPORT INFORMATION
  Report Type: 
  Country: None (occurrence: None)
  Receive Date: 20070216
  Receipt Date: 20070209
  Transmission Date: 20070707
  Serious: Yes (Other)
  Sender: FDA-Public Use
  Company Number: JP-PFIZER INC-2007011417

PATIENT
  Sex: Female

DRUGS (3)
  1. NORVASC [Suspect]
     Indication: HYPERTENSION
     Dosage: DAILY DOSE:5MG
     Route: 048
  2. BLOPRESS [Concomitant]
     Route: 048
  3. ADALAT [Concomitant]
     Route: 048

REACTIONS (2)
  - BLOOD PRESSURE DIASTOLIC INCREASED [None]
  - INSOMNIA [None]
